FAERS Safety Report 12613356 (Version 2)
Quarter: 2016Q3

REPORT INFORMATION
  Report Type: Spontaneous
  Country: DE (occurrence: DE)
  Receive Date: 20160802
  Receipt Date: 20160809
  Transmission Date: 20161109
  Serious: Yes (Hospitalization, Other)
  Sender: FDA-Public Use
  Company Number: DE-AMGEN-DEUSP2016098099

PATIENT
  Sex: Female

DRUGS (6)
  1. VINCRISTINE [Suspect]
     Active Substance: VINCRISTINE
     Indication: B-CELL LYMPHOMA
     Dosage: 4.1 MG, UNK (1 TIME A DAY FOR 1 DAY)
     Route: 042
     Dates: start: 20160705, end: 20160705
  2. RITUXIMAB [Suspect]
     Active Substance: RITUXIMAB
     Indication: B-CELL LYMPHOMA
     Dosage: 768.75 MG, UNK (1 TIME A DAY FOR 1 DAY)
     Route: 042
     Dates: start: 20160701, end: 20160701
  3. DOXORUBICINE [Suspect]
     Active Substance: DOXORUBICIN
     Indication: B-CELL LYMPHOMA
     Dosage: 102.5 MG, UNK (1 TIME A DAY FOR 1 DAYS)
     Route: 042
     Dates: start: 20160702, end: 20160702
  4. PEGFILGRASTIM [Suspect]
     Active Substance: PEGFILGRASTIM
     Indication: B-CELL LYMPHOMA
     Dosage: 6 MG, UNK (1 TIME A DAY FOR 1 DAY)
     Route: 058
     Dates: start: 20160703, end: 20160703
  5. PREDNISONE. [Suspect]
     Active Substance: PREDNISONE
     Indication: B-CELL LYMPHOMA
     Dosage: 100 MG, QD (1 TIME A DAY FOR 5 DAYS)
     Route: 048
     Dates: start: 20160702, end: 20160706
  6. CYCLOPHOSPHAMIDE. [Suspect]
     Active Substance: CYCLOPHOSPHAMIDE
     Indication: B-CELL LYMPHOMA
     Dosage: 1537.5 MG, UNK (1 TIMES A DAY FOR 1 DAY)
     Route: 042
     Dates: start: 20160702, end: 20160702

REACTIONS (1)
  - Embolism [Recovered/Resolved with Sequelae]

NARRATIVE: CASE EVENT DATE: 20160714
